FAERS Safety Report 24396217 (Version 2)
Quarter: 2024Q4

REPORT INFORMATION
  Report Type: Spontaneous
  Country: JP (occurrence: JP)
  Receive Date: 20241004
  Receipt Date: 20241111
  Transmission Date: 20250115
  Serious: Yes (Other)
  Sender: ALEXION PHARMACEUTICALS
  Company Number: JP-ASTRAZENECA-240104776_013120_P_1

PATIENT

DRUGS (16)
  1. DURVALUMAB [Suspect]
     Active Substance: DURVALUMAB
     Indication: Bile duct cancer
     Dosage: DOSE UNKNOWN
  2. DURVALUMAB [Suspect]
     Active Substance: DURVALUMAB
     Dosage: DOSE UNKNOWN
  3. DURVALUMAB [Suspect]
     Active Substance: DURVALUMAB
     Dosage: DOSE UNKNOWN
  4. DURVALUMAB [Suspect]
     Active Substance: DURVALUMAB
     Dosage: DOSE UNKNOWN
  5. DURVALUMAB [Suspect]
     Active Substance: DURVALUMAB
     Dosage: DOSE UNKNOWN
  6. DURVALUMAB [Suspect]
     Active Substance: DURVALUMAB
     Dosage: DOSE UNKNOWN
  7. DURVALUMAB [Suspect]
     Active Substance: DURVALUMAB
     Dosage: DOSE UNKNOWN
  8. DURVALUMAB [Suspect]
     Active Substance: DURVALUMAB
     Dosage: DOSE UNKNOWN
  9. GEMCITABINE HYDROCHLORIDE [Concomitant]
     Active Substance: GEMCITABINE HYDROCHLORIDE
     Indication: Bile duct cancer
     Dosage: DOSE UNKNOWN
     Route: 065
  10. GEMCITABINE HYDROCHLORIDE [Concomitant]
     Active Substance: GEMCITABINE HYDROCHLORIDE
     Dosage: DOSE UNKNOWN
  11. GEMCITABINE HYDROCHLORIDE [Concomitant]
     Active Substance: GEMCITABINE HYDROCHLORIDE
     Dosage: DOSE UNKNOWN
     Route: 065
  12. GEMCITABINE HYDROCHLORIDE [Concomitant]
     Active Substance: GEMCITABINE HYDROCHLORIDE
     Dosage: DOSE UNKNOWN
  13. CISPLATIN [Concomitant]
     Active Substance: CISPLATIN
     Indication: Bile duct cancer
     Dosage: DOSE UNKNOWN
     Route: 065
  14. CISPLATIN [Concomitant]
     Active Substance: CISPLATIN
     Dosage: DOSE UNKNOWN
  15. CISPLATIN [Concomitant]
     Active Substance: CISPLATIN
     Dosage: DOSE UNKNOWN
     Route: 065
  16. CISPLATIN [Concomitant]
     Active Substance: CISPLATIN
     Dosage: DOSE UNKNOWN

REACTIONS (1)
  - Myelosuppression [Unknown]
